FAERS Safety Report 23474380 (Version 1)
Quarter: 2024Q1

REPORT INFORMATION
  Report Type: Report from Study
  Country: US (occurrence: US)
  Receive Date: 20240204
  Receipt Date: 20240204
  Transmission Date: 20240410
  Serious: Yes (Other)
  Sender: FDA-Public Use
  Company Number: US-EXELIXIS-CABO-23061208

PATIENT
  Sex: Male

DRUGS (1)
  1. CABOMETYX [Suspect]
     Active Substance: CABOZANTINIB S-MALATE
     Indication: Renal cancer
     Dosage: 40 MG, QD
     Route: 048
     Dates: start: 20220302

REACTIONS (7)
  - Eye haemorrhage [Recovered/Resolved]
  - Renal failure [Unknown]
  - Glycosylated haemoglobin increased [Unknown]
  - Wound [Recovering/Resolving]
  - Impaired healing [Recovering/Resolving]
  - Anaemia [Unknown]
  - Staphylococcal infection [Unknown]
